FAERS Safety Report 8364056-6 (Version None)
Quarter: 2012Q2

REPORT INFORMATION
  Report Type: 
  Country: None (occurrence: None)
  Receive Date: 20120516
  Receipt Date: 20120301
  Transmission Date: 20120825
  Serious: Yes (Hospitalization)
  Sender: FDA-Public Use
  Company Number: US-ALEXION-A201200171

PATIENT
  Sex: Female

DRUGS (10)
  1. COUMADIN [Suspect]
     Indication: THROMBOSIS PROPHYLAXIS
     Dosage: UNK
     Dates: end: 20120101
  2. POTASSIUM CHLORIDE [Concomitant]
  3. FERROUS SULFATE TAB [Concomitant]
  4. SOLIRIS [Suspect]
     Indication: PAROXYSMAL NOCTURNAL HAEMOGLOBINURIA
     Dosage: 600 MG, QW
     Route: 042
     Dates: start: 20100301
  5. FOLIC ACID [Concomitant]
  6. SOLIRIS [Suspect]
     Dosage: 900 MG, Q2W
     Dates: start: 20100101
  7. IRON [Concomitant]
  8. METFORMIN HCL [Concomitant]
  9. AMLODIPINE BESYLATE [Concomitant]
  10. LASIX [Concomitant]

REACTIONS (6)
  - DIVERTICULUM [None]
  - ABDOMINAL PAIN [None]
  - GASTRIC POLYPS [None]
  - HAEMORRHOIDS [None]
  - DIVERTICULITIS [None]
  - RECTAL HAEMORRHAGE [None]
